FAERS Safety Report 9759383 (Version 1)
Quarter: 2013Q4

REPORT INFORMATION
  Report Type: Spontaneous
  Country: US (occurrence: None)
  Receive Date: 20131216
  Receipt Date: 20131216
  Transmission Date: 20140711
  Serious: Yes (Hospitalization)
  Sender: FDA-Public Use
  Company Number: 163-21880-12040817(0)

PATIENT
  Age: 58 Year
  Sex: Male
  Weight: 103 kg

DRUGS (1)
  1. REVLIMID [Suspect]
     Indication: PLASMA CELL MYELOMA
     Dosage: 10 MG, DAILY FOR 3 WEEKS OUT OF 4, PO

REACTIONS (1)
  - Herpes zoster [None]
